FAERS Safety Report 18908472 (Version 3)
Quarter: 2021Q2

REPORT INFORMATION
  Report Type: Spontaneous
  Country: JP (occurrence: JP)
  Receive Date: 20210218
  Receipt Date: 20210601
  Transmission Date: 20210717
  Serious: Yes (Other)
  Sender: FDA-Public Use
  Company Number: NVSJ2021JP002464

PATIENT
  Age: 78 Year
  Sex: Male

DRUGS (2)
  1. ENERZAIR [Suspect]
     Active Substance: GLYCOPYRROLATE\INDACATEROL\MOMETASONE FUROATE
     Indication: ASTHMA
     Dosage: UNK, 1DF: INDACATEROL150UG, GLYCOPYRRONIUM50UG AND MOMETASONE FUROATE 160UG
     Route: 055
  2. INTERFERON [Concomitant]
     Active Substance: INTERFERON
     Indication: PRODUCT USED FOR UNKNOWN INDICATION
     Dosage: VISITED THE HOSPITAL FOR 8 YEARS, TREATED EVERY 2 MONTHS
     Route: 065

REACTIONS (3)
  - Pyrexia [Unknown]
  - Nasopharyngitis [Unknown]
  - Pneumonia [Recovered/Resolved]

NARRATIVE: CASE EVENT DATE: 20201228
